FAERS Safety Report 4714653-1 (Version None)
Quarter: 2005Q3

REPORT INFORMATION
  Report Type: 
  Country: None (occurrence: None)
  Receive Date: 20050712
  Receipt Date: 20050629
  Transmission Date: 20060218
  Serious: Yes (Hospitalization)
  Sender: FDA-Public Use
  Company Number: 2005094684

PATIENT
  Age: 79 Year
  Sex: Female

DRUGS (3)
  1. DILANTIN [Suspect]
     Indication: CONVULSION PROPHYLAXIS
     Dosage: 300 MG (300 MG, 1 IN 1 D)
  2. DILANTIN KAPSEAL [Suspect]
     Indication: CONVULSION PROPHYLAXIS
     Dosage: 300 MD (1 IN 1 D)
  3. GRAVOL TAB [Concomitant]

REACTIONS (4)
  - DEHYDRATION [None]
  - DEMENTIA [None]
  - DYSPHAGIA [None]
  - PHARMACEUTICAL PRODUCT COMPLAINT [None]
